FAERS Safety Report 15297751 (Version 6)
Quarter: 2018Q3

REPORT INFORMATION
  Report Type: Report from Study
  Country: CA (occurrence: CA)
  Receive Date: 20180820
  Receipt Date: 20180928
  Transmission Date: 20181010
  Serious: Yes (Other)
  Sender: FDA-Public Use
  Company Number: CA-PFIZER INC-2018332398

PATIENT
  Age: 63 Year
  Sex: Male
  Weight: 63 kg

DRUGS (12)
  1. LEUCOVORIN. [Concomitant]
     Active Substance: LEUCOVORIN
     Indication: OESOPHAGEAL ADENOCARCINOMA
     Dosage: 345 MG, 1X/DAY
     Route: 042
     Dates: start: 20170511
  2. OXALIPLATIN. [Suspect]
     Active Substance: OXALIPLATIN
     Indication: OESOPHAGEAL ADENOCARCINOMA
     Dosage: 147 MG, UNK
     Route: 042
     Dates: start: 20170511
  3. OXALIPLATIN. [Suspect]
     Active Substance: OXALIPLATIN
     Dosage: 147 MG, UNK
     Route: 042
     Dates: end: 20170720
  4. FLUOROURACIL. [Suspect]
     Active Substance: FLUOROURACIL
     Indication: OESOPHAGEAL ADENOCARCINOMA
     Dosage: 4498 MG, UNK
     Route: 042
     Dates: start: 20170511
  5. AVELUMAB [Suspect]
     Active Substance: AVELUMAB
     Indication: OESOPHAGEAL ADENOCARCINOMA
     Dosage: 634 MG, CYCLIC (ONCE EVERY 2 WEEKS)
     Route: 042
     Dates: start: 20170810
  6. FLUOROURACIL. [Suspect]
     Active Substance: FLUOROURACIL
     Dosage: 4498 MG, UNK
     Route: 042
     Dates: end: 20170720
  7. OXALIPLATIN. [Suspect]
     Active Substance: OXALIPLATIN
     Dosage: 147 MG, UNK
     Route: 042
  8. OXALIPLATIN. [Suspect]
     Active Substance: OXALIPLATIN
     Indication: OESOPHAGEAL ADENOCARCINOMA
     Dosage: CYCLIC (CYCLE 8) (OFF PROTOCOL)
     Route: 042
     Dates: start: 20180724
  9. AVELUMAB [Suspect]
     Active Substance: AVELUMAB
     Dosage: 634 MG, CYCLIC (ONCE EVERY 2 WEEKS)
     Route: 042
     Dates: end: 20180405
  10. AVELUMAB [Suspect]
     Active Substance: AVELUMAB
     Dosage: 634 MG, CYCLIC (ONCE EVERY 2 WEEKS)
     Route: 042
  11. FLUOROURACIL. [Suspect]
     Active Substance: FLUOROURACIL
     Indication: OESOPHAGEAL ADENOCARCINOMA
     Dosage: CYCLIC (CYCLE 8) (OFF PROTOCOL)
     Route: 042
     Dates: start: 20180724
  12. AVELUMAB [Suspect]
     Active Substance: AVELUMAB
     Dosage: 634 MG, CYCLIC (ONCE EVERY 2 WEEKS)
     Route: 042

REACTIONS (1)
  - Hepatitis [Recovered/Resolved]

NARRATIVE: CASE EVENT DATE: 20180724
